FAERS Safety Report 9470779 (Version 1)
Quarter: 2013Q3

REPORT INFORMATION
  Report Type: Spontaneous
  Country: CA (occurrence: CA)
  Receive Date: 20130822
  Receipt Date: 20130822
  Transmission Date: 20140515
  Serious: Yes (Death, Hospitalization)
  Sender: FDA-Public Use
  Company Number: CA-ROCHE-1262478

PATIENT
  Age: 67 Year
  Sex: Male

DRUGS (18)
  1. MYCOPHENOLATE MOFETIL [Suspect]
     Indication: PRODUCT USED FOR UNKNOWN INDICATION
     Route: 048
  2. RAPAMUNE [Suspect]
     Indication: PRODUCT USED FOR UNKNOWN INDICATION
     Dosage: THERAPY DURATION, 70.0 DAYS
     Route: 048
  3. RAPAMUNE [Suspect]
     Dosage: THERAPY DURATION, 66.0 DAYS
     Route: 048
  4. PREDNISONE [Suspect]
     Indication: PRODUCT USED FOR UNKNOWN INDICATION
     Dosage: THERAPY DURATION, 151.0 DAYS
     Route: 048
  5. TACROLIMUS [Suspect]
     Indication: PRODUCT USED FOR UNKNOWN INDICATION
     Dosage: THERAPY DURATION, 70.0 DAYS
     Route: 048
  6. ACTONEL [Concomitant]
     Route: 065
  7. AMLODIPINE [Concomitant]
     Route: 065
  8. ASA [Concomitant]
     Route: 065
  9. ATACAND [Concomitant]
     Route: 065
  10. CALCIUM CARBONATE [Concomitant]
     Route: 065
  11. CALCIUM GLUCONATE [Concomitant]
     Route: 065
  12. CALCIUM LACTATE [Concomitant]
     Route: 065
  13. ERGOCALCIFEROL [Concomitant]
     Route: 065
  14. INSULIN ISOPHANE [Concomitant]
     Route: 065
  15. INSULIN-TORONTO [Concomitant]
     Route: 065
  16. LEVOTHYROXINE [Concomitant]
     Route: 065
  17. LIPITOR [Concomitant]
     Route: 065
  18. PAXIL [Concomitant]
     Route: 065

REACTIONS (12)
  - Abdominal pain [Fatal]
  - Blood creatinine increased [Fatal]
  - Blood potassium increased [Fatal]
  - Blood sodium decreased [Fatal]
  - Confusional state [Fatal]
  - Dehydration [Fatal]
  - General physical health deterioration [Fatal]
  - Metastatic neoplasm [Fatal]
  - Pain [Fatal]
  - Pancreatic carcinoma [Fatal]
  - Pancreatic disorder [Fatal]
  - Renal failure acute [Fatal]
